FAERS Safety Report 6371105-3 (Version None)
Quarter: 2009Q3

REPORT INFORMATION
  Report Type: 
  Country: None (occurrence: None)
  Receive Date: 20090923
  Receipt Date: 20090918
  Transmission Date: 20100115
  Serious: Yes (Death, Life-Threatening, Hospitalization, Other)
  Sender: FDA-Public Use
  Company Number: PHHY2009ES18497

PATIENT
  Sex: Male

DRUGS (10)
  1. EVEROLIMUS [Suspect]
     Indication: HEPATIC NEOPLASM MALIGNANT RECURRENT
     Dosage: UNK
     Route: 048
     Dates: start: 20050101
  2. NEXAVAR [Suspect]
     Indication: HEPATIC NEOPLASM MALIGNANT RECURRENT
     Dosage: 800 MG, DAILY
     Route: 048
     Dates: start: 20080428, end: 20090322
  3. ADIRO [Concomitant]
     Indication: PLATELET AGGREGATION INHIBITION
     Dosage: 100 MG, UNK
     Route: 048
  4. TRIALMIN [Concomitant]
     Indication: HYPERTRIGLYCERIDAEMIA
     Dosage: 900 MG, UNK
     Route: 048
  5. EUGLUCON [Concomitant]
  6. LESCOL [Concomitant]
  7. ATACAND HCT [Concomitant]
     Indication: HYPERTENSION
  8. RESINCALCIO [Concomitant]
     Indication: HYPERKALAEMIA
  9. NEURONTIN [Concomitant]
     Indication: DIABETIC NEPHROPATHY
  10. INSULIN [Concomitant]
     Indication: DIABETES MELLITUS

REACTIONS (23)
  - AORTIC VALVE SCLEROSIS [None]
  - BLOOD CREATININE INCREASED [None]
  - BLOOD SODIUM DECREASED [None]
  - CARDIAC ARREST [None]
  - CARDIAC FAILURE [None]
  - CARDIAC MURMUR [None]
  - CARDIOMEGALY [None]
  - DILATATION VENTRICULAR [None]
  - DISEASE PROGRESSION [None]
  - EJECTION FRACTION DECREASED [None]
  - GASTROINTESTINAL HAEMORRHAGE [None]
  - HAEMOGLOBIN DECREASED [None]
  - HEPATOMEGALY [None]
  - HYPOKINESIA [None]
  - HYPOVOLAEMIC SHOCK [None]
  - MITRAL VALVE INCOMPETENCE [None]
  - PLEURAL EFFUSION [None]
  - PULMONARY OEDEMA [None]
  - PYREXIA [None]
  - RESPIRATORY FAILURE [None]
  - TRACHEOSTOMY [None]
  - TUMOUR INVASION [None]
  - VENTRICULAR DYSFUNCTION [None]
